FAERS Safety Report 5796271-X (Version None)
Quarter: 2008Q2

REPORT INFORMATION
  Report Type: 
  Country: None (occurrence: None)
  Receive Date: 20080618
  Receipt Date: 20071009
  Transmission Date: 20081010
  Serious: Yes (Other)
  Sender: FDA-Public Use
  Company Number: 200715207US

PATIENT
  Age: 62 Year
  Sex: Female

DRUGS (7)
  1. LANTUS [Suspect]
     Indication: TYPE 2 DIABETES MELLITUS
     Dosage: 34 U
  2. OPTICLIK GREY [Suspect]
     Indication: TYPE 2 DIABETES MELLITUS
     Dates: start: 20070101, end: 20070701
  3. HUMIRA [Concomitant]
  4. PANTOPRAZOLE SODIUM [Concomitant]
  5. ACYCLOVIR [Concomitant]
  6. CEVIMELINE HYDROCHLORIDE (EVOXAC) [Concomitant]
  7. NEURONTIN [Concomitant]

REACTIONS (3)
  - ASTHENIA [None]
  - BLOOD GLUCOSE INCREASED [None]
  - HYPOGLYCAEMIA [None]
